FAERS Safety Report 12065846 (Version 1)
Quarter: 2016Q1

REPORT INFORMATION
  Report Type: Spontaneous
  Country: US (occurrence: None)
  Receive Date: 20160210
  Receipt Date: 20160210
  Transmission Date: 20160526
  Serious: No
  Sender: FDA-Public Use
  Company Number: None

PATIENT
  Age: 3 Month
  Sex: Male

DRUGS (5)
  1. A-HYDROCORT [Concomitant]
     Active Substance: HYDROCORTISONE SODIUM SUCCINATE
  2. EXJADE [Suspect]
     Active Substance: DEFERASIROX
     Indication: NEOPLASM MALIGNANT
     Route: 048
     Dates: start: 20151027
  3. ONDANSETRON [Concomitant]
     Active Substance: ONDANSETRON
  4. AMOXICILLIN. [Concomitant]
     Active Substance: AMOXICILLIN
  5. FLUCONAZOLE. [Concomitant]
     Active Substance: FLUCONAZOLE

REACTIONS (1)
  - Off label use [None]

NARRATIVE: CASE EVENT DATE: 20151027
